FAERS Safety Report 7860856-7 (Version None)
Quarter: 2011Q4

REPORT INFORMATION
  Report Type: 
  Country: None (occurrence: None)
  Receive Date: 20111027
  Receipt Date: 20111019
  Transmission Date: 20120403
  Serious: Yes (Hospitalization)
  Sender: FDA-Public Use
  Company Number: US-BAXTER-2011BH031885

PATIENT
  Sex: Male

DRUGS (3)
  1. DIANEAL [Suspect]
     Indication: PERITONEAL DIALYSIS
     Route: 033
  2. DIANEAL [Suspect]
     Indication: PERITONEAL DIALYSIS
     Route: 033
  3. DIANEAL [Suspect]
     Indication: PERITONEAL DIALYSIS
     Route: 033

REACTIONS (6)
  - PERITONITIS BACTERIAL [None]
  - MENTAL STATUS CHANGES [None]
  - HYPOTENSION [None]
  - PLEURAL EFFUSION [None]
  - PERITONEAL DIALYSIS COMPLICATION [None]
  - ORTHOSTATIC HYPOTENSION [None]
